FAERS Safety Report 8534834-9 (Version None)
Quarter: 2012Q3

REPORT INFORMATION
  Report Type: 
  Country: None (occurrence: None)
  Receive Date: 20120724
  Receipt Date: 20120716
  Transmission Date: 20120928
  Serious: Yes (Other)
  Sender: FDA-Public Use
  Company Number: KR-ROXANE LABORATORIES, INC.-2012-RO-01550RO

PATIENT
  Age: 23 Year
  Sex: Male

DRUGS (2)
  1. FLUOXETINE HCL [Suspect]
     Indication: DEPRESSION
     Dosage: 10 MG
  2. LORAZEPAM [Suspect]
     Indication: DEPRESSION
     Dosage: 1.5 MG

REACTIONS (1)
  - ACCOMMODATION DISORDER [None]
